FAERS Safety Report 6193315-0 (Version None)
Quarter: 2009Q2

REPORT INFORMATION
  Report Type: 
  Country: None (occurrence: None)
  Receive Date: 20090513
  Receipt Date: 20090513
  Transmission Date: 20091009
  Serious: Yes (Other)
  Sender: FDA-Public Use
  Company Number: None

PATIENT
  Sex: Female
  Weight: 79.3795 kg

DRUGS (1)
  1. SIMVASTATIN [Suspect]
     Indication: HYPERCHOLESTEROLAEMIA
     Dosage: 40 MG 1 PER DAY ORAL
     Route: 048
     Dates: start: 20061101, end: 20090401

REACTIONS (4)
  - ARTHRITIS [None]
  - MEMORY IMPAIRMENT [None]
  - MYALGIA [None]
  - NEURALGIA [None]
